FAERS Safety Report 5453484-4 (Version None)
Quarter: 2007Q3

REPORT INFORMATION
  Report Type: 
  Country: None (occurrence: None)
  Receive Date: 20070913
  Receipt Date: 20070830
  Transmission Date: 20080115
  Serious: Yes (Hospitalization, Other)
  Sender: FDA-Public Use
  Company Number: A-US2007-14729

PATIENT
  Age: 66 Year
  Sex: Female
  Weight: 73.5 kg

DRUGS (20)
  1. TRACLEER [Suspect]
     Indication: PULMONARY HYPERTENSION
     Dosage: 125 MG, BID, ORAL; 62.5 MG, BID, ORAL
     Route: 048
     Dates: start: 20050823
  2. TRACLEER [Suspect]
     Indication: PULMONARY HYPERTENSION
     Dosage: 125 MG, BID, ORAL; 62.5 MG, BID, ORAL
     Route: 048
     Dates: start: 20050823
  3. VENTAVIS [Suspect]
     Indication: PULMONARY HYPERTENSION
     Dosage: 2.5 UG, 6 X DAY,; 5 UG, 6 X DAY, RESPIRATORY
     Dates: start: 20060428, end: 20060605
  4. VENTAVIS [Suspect]
     Indication: PULMONARY HYPERTENSION
     Dosage: 2.5 UG, 6 X DAY,; 5 UG, 6 X DAY, RESPIRATORY
     Dates: start: 20060606
  5. ZETIA [Concomitant]
  6. ASPIRIN [Concomitant]
  7. PLAVIX [Concomitant]
  8. LASIX [Concomitant]
  9. POTASSIUM CHLORIDE [Concomitant]
  10. ASCORBIC ACID [Concomitant]
  11. IRON (IRON) [Concomitant]
  12. SPIRONOLACTONE [Concomitant]
  13. TOPROL-XL [Concomitant]
  14. ISOSORBIDE MONONITRATE [Concomitant]
  15. IRON DEXTRAN INJECTION (IRON DEXTRAN) [Concomitant]
  16. ZYRTEC (CETIRIZINE HYDROCHLORIDE, PSEUDOEPHEDRINE HYDROCHLORIDE) [Concomitant]
  17. PREVACID [Concomitant]
  18. HYDROCHLOROTHIAZIDE [Concomitant]
  19. NITROGLYCERIN [Concomitant]
  20. OXYGEN (OXYGEN) [Concomitant]

REACTIONS (7)
  - CORONARY ARTERY OCCLUSION [None]
  - DECREASED APPETITE [None]
  - GLOSSODYNIA [None]
  - IRON DEFICIENCY ANAEMIA [None]
  - OEDEMA PERIPHERAL [None]
  - PAIN IN EXTREMITY [None]
  - PAIN IN JAW [None]
